FAERS Safety Report 6271265-9 (Version None)
Quarter: 2009Q3

REPORT INFORMATION
  Report Type: 
  Country: None (occurrence: None)
  Receive Date: 20090717
  Receipt Date: 20090708
  Transmission Date: 20100115
  Serious: Yes (Other)
  Sender: FDA-Public Use
  Company Number: US-JNJFOC-20090604292

PATIENT
  Sex: Female
  Weight: 57.15 kg

DRUGS (3)
  1. ULTRAM ER [Suspect]
     Indication: NECK PAIN
     Dosage: 1 DOSE
     Route: 048
  2. NABUMETONE [Concomitant]
  3. TRANXENE [Concomitant]
     Indication: NECK PAIN

REACTIONS (8)
  - COORDINATION ABNORMAL [None]
  - DIZZINESS [None]
  - DYSARTHRIA [None]
  - GAIT DISTURBANCE [None]
  - HALLUCINATION [None]
  - NAUSEA [None]
  - SENSORY DISTURBANCE [None]
  - VOMITING [None]
